FAERS Safety Report 10877880 (Version 1)
Quarter: 2015Q1

REPORT INFORMATION
  Report Type: Spontaneous
  Country: JP (occurrence: JP)
  Receive Date: 20150302
  Receipt Date: 20150302
  Transmission Date: 20150721
  Serious: Yes (Other)
  Sender: FDA-Public Use
  Company Number: JP-MYLANLABS-2015M1005107

PATIENT

DRUGS (1)
  1. CILOSTAZOL TABLETS 50 MG ^MYLAN^ [Suspect]
     Active Substance: CILOSTAZOL
     Indication: BRADYARRHYTHMIA
     Route: 048

REACTIONS (1)
  - Haemobilia [Recovering/Resolving]
